FAERS Safety Report 8550487-8 (Version None)
Quarter: 2012Q3

REPORT INFORMATION
  Report Type: 
  Country: None (occurrence: None)
  Receive Date: 20120730
  Receipt Date: 20120716
  Transmission Date: 20120928
  Serious: Yes (Other)
  Sender: FDA-Public Use
  Company Number: US-ELI_LILLY_AND_COMPANY-US201205004376

PATIENT
  Age: 48 Year
  Sex: Female
  Weight: 41.27 kg

DRUGS (3)
  1. CYMBALTA [Suspect]
     Indication: MAJOR DEPRESSION
     Dosage: 60 MG, QD
     Route: 048
     Dates: start: 20111101
  2. NSAID'S [Concomitant]
  3. CYMBALTA [Suspect]
     Dosage: 30 MG DAILY
     Route: 048

REACTIONS (5)
  - GASTRITIS [None]
  - OCCULT BLOOD POSITIVE [None]
  - PEPTIC ULCER [None]
  - WEIGHT DECREASED [None]
  - DUODENAL ULCER [None]
